FAERS Safety Report 14379535 (Version 1)
Quarter: 2018Q1

REPORT INFORMATION
  Report Type: Spontaneous
  Country: FR (occurrence: FR)
  Receive Date: 20180112
  Receipt Date: 20180112
  Transmission Date: 20180509
  Serious: Yes (Hospitalization)
  Sender: FDA-Public Use
  Company Number: FR-CIPLA LTD.-2017FR31151

PATIENT

DRUGS (9)
  1. ATORVASTATINE ARROW 10 MG, COMPRIME PELLICULE [Concomitant]
     Indication: DYSLIPIDAEMIA
     Dosage: 10 MG, PER DAY
     Route: 048
  2. LAMOTRIGINE. [Suspect]
     Active Substance: LAMOTRIGINE
     Indication: EPILEPSY
     Dosage: 25 MG, PER DAY
     Route: 048
     Dates: start: 20171110, end: 20171114
  3. LEVEMIR FLEXPEN 100 U/ML, SOLUTION INJECTABLE EN STYLO PREREMPLI [Concomitant]
     Indication: TYPE 2 DIABETES MELLITUS
     Dosage: 14 IU, PER DAY
     Route: 058
  4. PANTOPRAZOLE [Concomitant]
     Active Substance: PANTOPRAZOLE
     Indication: PRODUCT USED FOR UNKNOWN INDICATION
     Dosage: 20 MG, PER DAY
     Route: 048
  5. ASPEGICENFANTS 250, POUDRE POUR SOLUTION BUVABLE EN SACHET-DOSE [Concomitant]
     Indication: CEREBROVASCULAR ACCIDENT
     Dosage: 250 MG, PER DAY
     Route: 048
  6. NOVORAPID [Concomitant]
     Active Substance: INSULIN ASPART
     Indication: DIABETES MELLITUS
     Dosage: 3 IU, PER DAY
     Route: 058
  7. METFORMINE [Concomitant]
     Active Substance: METFORMIN HYDROCHLORIDE
     Indication: TYPE 2 DIABETES MELLITUS
     Dosage: 1500 MG, PER DAY
     Route: 048
  8. DOLIPRANE [Concomitant]
     Active Substance: ACETAMINOPHEN
     Indication: GAIT DISTURBANCE
     Dosage: UNK
     Route: 048
  9. NEUPRO [Concomitant]
     Active Substance: ROTIGOTINE
     Indication: PARKINSONISM
     Dosage: 2 MG, PER DAY
     Route: 062

REACTIONS (2)
  - Coma [Recovered/Resolved]
  - Parkinson^s disease [Not Recovered/Not Resolved]

NARRATIVE: CASE EVENT DATE: 20171110
